FAERS Safety Report 6218136-1 (Version None)
Quarter: 2009Q2

REPORT INFORMATION
  Report Type: 
  Country: None (occurrence: None)
  Receive Date: 20090608
  Receipt Date: 20090603
  Transmission Date: 20091009
  Serious: Yes (Death)
  Sender: FDA-Public Use
  Company Number: PHHY2009PE21759

PATIENT
  Sex: Female

DRUGS (3)
  1. EXFORGE [Suspect]
     Dosage: 160/5 MG/DAY
  2. ESPIRONE [Concomitant]
     Indication: BLOOD PRESSURE MANAGEMENT
     Dosage: 1 DF, QD
     Route: 048
     Dates: start: 20070101, end: 20090201
  3. DRUG THERAPY NOS [Concomitant]
     Indication: ANGIOPATHY
     Dosage: UNK
     Dates: start: 20020101, end: 20090201

REACTIONS (1)
  - CEREBROVASCULAR ACCIDENT [None]
